FAERS Safety Report 7651623-8 (Version None)
Quarter: 2011Q3

REPORT INFORMATION
  Report Type: 
  Country: None (occurrence: None)
  Receive Date: 20110802
  Receipt Date: 20110720
  Transmission Date: 20111222
  Serious: Yes (Hospitalization, Other)
  Sender: FDA-Public Use
  Company Number: IL-ELI_LILLY_AND_COMPANY-IL201107005814

PATIENT
  Sex: Male

DRUGS (1)
  1. CYMBALTA [Suspect]
     Dosage: 60 MG, QD
     Dates: start: 20110714, end: 20110714

REACTIONS (7)
  - FEAR [None]
  - ANXIETY [None]
  - PULMONARY CONGESTION [None]
  - DYSPNOEA [None]
  - HYPERHIDROSIS [None]
  - PANIC ATTACK [None]
  - BLOOD PRESSURE INCREASED [None]
